FAERS Safety Report 21813475 (Version 1)
Quarter: 2023Q1

REPORT INFORMATION
  Report Type: Spontaneous
  Country: US (occurrence: US)
  Receive Date: 20230103
  Receipt Date: 20230103
  Transmission Date: 20230417
  Serious: No
  Sender: FDA-Public Use
  Company Number: US-BIOVITRUM-2022US15947

PATIENT
  Sex: Male
  Weight: 11 kg

DRUGS (5)
  1. SYNAGIS [Suspect]
     Active Substance: PALIVIZUMAB
     Indication: Atrioventricular septal defect
     Dates: start: 20221201
  2. ENALAPRIL MALEATE [Concomitant]
     Active Substance: ENALAPRIL MALEATE
     Indication: Product used for unknown indication
     Dosage: 1 MG/ML SOLUTION
  3. LASIX [Concomitant]
     Active Substance: FUROSEMIDE
     Indication: Product used for unknown indication
     Dosage: 20 MG TABLET
  4. SYNAGIS [Suspect]
     Active Substance: PALIVIZUMAB
     Indication: Mitral valve incompetence
  5. SYNAGIS [Suspect]
     Active Substance: PALIVIZUMAB
     Indication: Premature baby

REACTIONS (1)
  - Nasopharyngitis [Recovered/Resolved]
